FAERS Safety Report 8018005-0 (Version None)
Quarter: 2012Q1

REPORT INFORMATION
  Report Type: 
  Country: None (occurrence: None)
  Receive Date: 20120103
  Receipt Date: 20111222
  Transmission Date: 20120608
  Serious: Yes (Other)
  Sender: FDA-Public Use
  Company Number: US-BAYER-2011-123175

PATIENT
  Sex: Female

DRUGS (3)
  1. DROSPIRENONE AND ETHINYL ESTRADIOL [Suspect]
     Dosage: UNK
     Dates: start: 20080101, end: 20110101
  2. YAZ [Suspect]
     Dosage: UNK
     Dates: start: 20080101, end: 20110101
  3. YASMIN [Suspect]
     Dosage: UNK
     Dates: start: 20080101, end: 20110101

REACTIONS (3)
  - PAIN [None]
  - INJURY [None]
  - CHOLECYSTECTOMY [None]
